FAERS Safety Report 4840638-0 (Version None)
Quarter: 2005Q4

REPORT INFORMATION
  Report Type: 
  Country: None (occurrence: None)
  Receive Date: 20051129
  Receipt Date: 20051129
  Transmission Date: 20060501
  Serious: No
  Sender: FDA-Public Use
  Company Number: None

PATIENT
  Age: 68 Year
  Sex: Male

DRUGS (3)
  1. CARBADOPA/LEVODOPA ER TABS APO132-50/200 APOTEX [Suspect]
     Indication: PARKINSON'S DISEASE
     Dosage: 1.5 TABS THREE TIMES DAILY
  2. SINEMET [Concomitant]
  3. COMTAN [Concomitant]

REACTIONS (4)
  - DRUG EFFECT DECREASED [None]
  - MOVEMENT DISORDER [None]
  - PHARMACEUTICAL PRODUCT COMPLAINT [None]
  - WRONG TECHNIQUE IN DRUG USAGE PROCESS [None]
